FAERS Safety Report 5277031-5 (Version None)
Quarter: 2007Q1

REPORT INFORMATION
  Report Type: 
  Country: None (occurrence: None)
  Receive Date: 20070327
  Receipt Date: 20070228
  Transmission Date: 20070707
  Serious: No
  Sender: FDA-Public Use
  Company Number: US-BRISTOL-MYERS SQUIBB COMPANY-13671938

PATIENT
  Age: 58 Year
  Sex: Female
  Weight: 68 kg

DRUGS (4)
  1. ORENCIA [Suspect]
     Indication: RHEUMATOID ARTHRITIS
     Route: 042
     Dates: start: 20061107
  2. PREDNISONE [Concomitant]
  3. MAXZIDE [Concomitant]
  4. LEVOXYL [Concomitant]

REACTIONS (2)
  - NAUSEA [None]
  - SENSATION OF BLOOD FLOW [None]
